FAERS Safety Report 11542334 (Version 1)
Quarter: 2015Q3

REPORT INFORMATION
  Report Type: Spontaneous
  Country: PL (occurrence: PL)
  Receive Date: 20150923
  Receipt Date: 20150923
  Transmission Date: 20151125
  Serious: Yes (Life-Threatening)
  Sender: FDA-Public Use
  Company Number: PL-TEVA-594335ACC

PATIENT
  Age: 30 Year
  Sex: Female
  Weight: 61 kg

DRUGS (2)
  1. ASERTIN [Concomitant]
     Indication: BIPOLAR DISORDER
     Route: 048
     Dates: start: 20150224, end: 20150330
  2. LAMILEPT [Suspect]
     Active Substance: LAMOTRIGINE
     Indication: BIPOLAR DISORDER
     Route: 048
     Dates: start: 20150311, end: 20150330

REACTIONS (14)
  - Rash erythematous [Recovered/Resolved]
  - Acute respiratory distress syndrome [Recovered/Resolved]
  - Coagulopathy [None]
  - Pyrexia [Recovered/Resolved]
  - Vomiting [Recovered/Resolved]
  - Pneumonia [Recovered/Resolved]
  - Alanine aminotransferase increased [None]
  - Activated partial thromboplastin time prolonged [None]
  - Fibrin D dimer increased [None]
  - Multi-organ failure [Recovered/Resolved]
  - Rash pruritic [None]
  - Dyspnoea [None]
  - Thrombocytopenia [None]
  - Leukopenia [None]

NARRATIVE: CASE EVENT DATE: 20150324
